FAERS Safety Report 6206852-7 (Version None)
Quarter: 2009Q2

REPORT INFORMATION
  Report Type: 
  Country: None (occurrence: None)
  Receive Date: 20090528
  Receipt Date: 20090324
  Transmission Date: 20091009
  Serious: No
  Sender: FDA-Public Use
  Company Number: US-AMGEN-US340487

PATIENT
  Sex: Male
  Weight: 88.5 kg

DRUGS (2)
  1. NPLATE [Suspect]
     Indication: IDIOPATHIC THROMBOCYTOPENIC PURPURA
     Route: 058
     Dates: start: 20090216, end: 20090316
  2. PREDNISONE [Concomitant]
     Route: 065
     Dates: start: 20090202, end: 20090323

REACTIONS (1)
  - URTICARIA [None]
